FAERS Safety Report 4357035-7 (Version None)
Quarter: 2004Q2

REPORT INFORMATION
  Report Type: 
  Country: None (occurrence: None)
  Receive Date: 20040512
  Receipt Date: 20040408
  Transmission Date: 20050107
  Serious: Yes (Hospitalization, Other)
  Sender: FDA-Public Use
  Company Number: US-GLAXOSMITHKLINE-A0506430A

PATIENT
  Age: 38 Year
  Sex: Female

DRUGS (15)
  1. LOTRONEX [Suspect]
     Indication: IRRITABLE BOWEL SYNDROME
     Dosage: 1MG TWICE PER DAY
     Route: 048
     Dates: start: 20040120, end: 20040217
  2. MICARDIS [Concomitant]
  3. LORTAB [Concomitant]
     Dosage: 7.5MG PER DAY
  4. ASPIRIN [Concomitant]
  5. LASIX [Concomitant]
  6. BEXTRA [Concomitant]
  7. CLONAZEPAM [Concomitant]
  8. HYOSCYAMINE [Concomitant]
  9. BELLATAL [Concomitant]
  10. PREVACID [Concomitant]
  11. DURAGESIC [Concomitant]
  12. STOOL SOFTENER [Concomitant]
  13. MULTIVITAMIN [Concomitant]
  14. CARISOPRODOL [Concomitant]
  15. NEURONTIN [Concomitant]

REACTIONS (4)
  - BREAST PAIN [None]
  - CONSTIPATION [None]
  - INTESTINAL OBSTRUCTION [None]
  - VOLVULUS OF BOWEL [None]
